FAERS Safety Report 19939473 (Version 1)
Quarter: 2021Q4

REPORT INFORMATION
  Report Type: Spontaneous
  Country: FR (occurrence: FR)
  Receive Date: 20211011
  Receipt Date: 20211011
  Transmission Date: 20220303
  Serious: Yes (Hospitalization)
  Sender: FDA-Public Use
  Company Number: None

PATIENT
  Age: 52 Year
  Sex: Female

DRUGS (3)
  1. NOXAFIL [Interacting]
     Active Substance: POSACONAZOLE
     Indication: Bronchopulmonary aspergillosis
     Dosage: 600 MG/J, FORMULATION: GASTRO-RESISTANT TABLET
     Route: 048
     Dates: start: 20210902, end: 20210912
  2. TACROLIMUS [Interacting]
     Active Substance: TACROLIMUS
     Indication: Prophylaxis against transplant rejection
     Dosage: UNK,SUITABLE FOR PLASMA ASSAYS, FORMULATION: PROLONGED-RELEASE HARD CAPSULES
     Route: 048
     Dates: start: 2014
  3. CERTICAN [Interacting]
     Active Substance: EVEROLIMUS
     Indication: Prophylaxis against transplant rejection
     Dosage: UNK, SUITABLE FOR PLASMA ASSAYS
     Route: 048
     Dates: start: 2014

REACTIONS (2)
  - Immunosuppressant drug level increased [Unknown]
  - Thrombocytopenia [Unknown]

NARRATIVE: CASE EVENT DATE: 20210906
